FAERS Safety Report 4811126-2 (Version None)
Quarter: 2005Q4

REPORT INFORMATION
  Report Type: 
  Country: None (occurrence: None)
  Receive Date: 20051027
  Receipt Date: 20051019
  Transmission Date: 20060501
  Serious: Yes (Hospitalization)
  Sender: FDA-Public Use
  Company Number: FRPFME20050103

PATIENT
  Age: 54 Year
  Sex: Male

DRUGS (3)
  1. NAVELBINE [Suspect]
     Indication: LUNG ADENOCARCINOMA
     Route: 042
     Dates: start: 20050704, end: 20050704
  2. CISPLATIN [Suspect]
     Indication: LUNG ADENOCARCINOMA
     Route: 042
     Dates: start: 20050704
  3. SKENAN [Concomitant]
     Route: 065

REACTIONS (2)
  - ADVERSE EVENT [None]
  - PANCYTOPENIA [None]
